FAERS Safety Report 7732968-X (Version None)
Quarter: 2011Q3

REPORT INFORMATION
  Report Type: 
  Country: None (occurrence: None)
  Receive Date: 20110907
  Receipt Date: 20110831
  Transmission Date: 20111222
  Serious: Yes (Other)
  Sender: FDA-Public Use
  Company Number: BR-PFIZER INC-2011204509

PATIENT
  Age: 66 Year
  Sex: Male
  Weight: 48.7 kg

DRUGS (7)
  1. SUTENT [Suspect]
     Dosage: 50 MOL, 1X/DAY
     Route: 048
     Dates: start: 20100513, end: 20100624
  2. MORPHINE [Concomitant]
     Dosage: 10 MG, EVERY 4 HOURS
     Route: 048
     Dates: start: 20100513, end: 20100710
  3. DIPYRONE TAB [Concomitant]
     Dosage: 40 DROPS (STRENGTH OF 500MG/ML), EVERY 6 HOURS
     Dates: start: 20100610, end: 20100710
  4. GABAPENTIN [Concomitant]
     Dosage: 300 MG, 2X/DAY, EVERY 12 HOURS
     Route: 048
     Dates: start: 20100513, end: 20100710
  5. BROMOPRIDE [Concomitant]
     Dosage: 10 MG, 3X/DAY, EVERY 8 HOURS
     Route: 048
     Dates: start: 20100610, end: 20100710
  6. MORPHINE [Concomitant]
     Dosage: 10 MG, EVERY 2 HOURS, SOS
  7. TRAMADOL [Concomitant]
     Dosage: 50 MG, 4X/DAY, EVERY 6 HOURS
     Route: 048
     Dates: start: 20100511, end: 20100513

REACTIONS (2)
  - THROMBOCYTOPENIA [None]
  - BLOOD THYROID STIMULATING HORMONE INCREASED [None]
